FAERS Safety Report 9423025 (Version 5)
Quarter: 2013Q3

REPORT INFORMATION
  Report Type: Spontaneous
  Country: US (occurrence: US)
  Receive Date: 20130726
  Receipt Date: 20130923
  Transmission Date: 20140515
  Serious: Yes (Hospitalization, Other)
  Sender: FDA-Public Use
  Company Number: US-GLAXOSMITHKLINE-A1033960A

PATIENT
  Age: 56 Year
  Sex: Female

DRUGS (4)
  1. FLOVENT [Suspect]
     Indication: CHRONIC OBSTRUCTIVE PULMONARY DISEASE
     Dosage: 2PUFF TWICE PER DAY
     Route: 055
     Dates: start: 1984
  2. VENTOLIN [Suspect]
     Indication: ASTHMA
     Dosage: 2PUFF AS REQUIRED
     Route: 055
     Dates: start: 20090311
  3. ADVAIR [Suspect]
     Indication: PRODUCT USED FOR UNKNOWN INDICATION
     Route: 055
     Dates: start: 201006
  4. VENTOLIN NEBULIZER [Concomitant]

REACTIONS (20)
  - Lung carcinoma cell type unspecified stage IV [Unknown]
  - Pneumonectomy [Unknown]
  - Aphonia [Unknown]
  - Back pain [Unknown]
  - Musculoskeletal pain [Unknown]
  - Shoulder operation [Unknown]
  - Lung disorder [Not Recovered/Not Resolved]
  - Haemoptysis [Not Recovered/Not Resolved]
  - Insomnia [Not Recovered/Not Resolved]
  - Choking sensation [Not Recovered/Not Resolved]
  - Radiotherapy [Unknown]
  - Chemotherapy [Unknown]
  - Dysphonia [Not Recovered/Not Resolved]
  - Dyspnoea [Not Recovered/Not Resolved]
  - Hospitalisation [Unknown]
  - Neoplasm malignant [Not Recovered/Not Resolved]
  - Treatment noncompliance [Unknown]
  - Bronchostenosis [Unknown]
  - Chronic obstructive pulmonary disease [Unknown]
  - Pain [Unknown]
